FAERS Safety Report 19186296 (Version 1)
Quarter: 2021Q2

REPORT INFORMATION
  Report Type: Other
  Country: US (occurrence: US)
  Receive Date: 20210427
  Receipt Date: 20210427
  Transmission Date: 20210717
  Serious: Yes (Hospitalization, Other)
  Sender: FDA-Public Use
  Company Number: US-ROCHE-2552968

PATIENT
  Age: 47 Year
  Sex: Female

DRUGS (1)
  1. OCREVUS [Suspect]
     Active Substance: OCRELIZUMAB
     Indication: MULTIPLE SCLEROSIS
     Route: 042
     Dates: start: 20190710, end: 20190724

REACTIONS (21)
  - Multiple sclerosis [Not Recovered/Not Resolved]
  - Multiple sclerosis relapse [Not Recovered/Not Resolved]
  - Grip strength decreased [Not Recovered/Not Resolved]
  - Oropharyngeal pain [Unknown]
  - Flushing [Unknown]
  - Spinal fusion surgery [Unknown]
  - Seizure [Unknown]
  - Paralysis [Unknown]
  - Cerebrovascular accident [Unknown]
  - Brain neoplasm [Unknown]
  - Parkinson^s disease [Not Recovered/Not Resolved]
  - Alopecia [Unknown]
  - Erythema [Unknown]
  - Colour blindness [Not Recovered/Not Resolved]
  - Prolapse [Unknown]
  - Oral herpes [Unknown]
  - Rhinorrhoea [Unknown]
  - Hepatic steatosis [Unknown]
  - Hemiparesis [Unknown]
  - Herpes virus infection [Unknown]
  - Dyspnoea [Unknown]

NARRATIVE: CASE EVENT DATE: 2020
